FAERS Safety Report 8596296-5 (Version None)
Quarter: 2012Q3

REPORT INFORMATION
  Report Type: 
  Country: None (occurrence: None)
  Receive Date: 20120815
  Receipt Date: 20120806
  Transmission Date: 20120928
  Serious: Yes (Other)
  Sender: FDA-Public Use
  Company Number: US-ASTRAZENECA-2012SE55654

PATIENT
  Age: 53 Year
  Sex: Female
  Weight: 73.9 kg

DRUGS (14)
  1. FOSAMAX [Concomitant]
     Dosage: WEEKLY
  2. ARIMIDEX [Suspect]
     Route: 048
     Dates: start: 20110311
  3. EPIRUBICIN [Concomitant]
     Dosage: FOR FOUR CYCLES
     Dates: start: 20050501, end: 20050701
  4. ABRAXANE [Concomitant]
     Dosage: FOR FOUR CYCLES
     Dates: start: 20050801, end: 20051001
  5. AMBIEN [Concomitant]
  6. TOPROL-XL [Suspect]
     Indication: PALPITATIONS
     Route: 048
  7. CYTOXAN [Concomitant]
     Dosage: FOR FOUR CYCLES
     Dates: start: 20050501, end: 20050701
  8. PROLIA [Concomitant]
  9. CALCIUM [Concomitant]
     Indication: OSTEOPENIA
  10. LORTAB [Concomitant]
  11. TAMOXIFEN CITRATE [Suspect]
     Route: 048
     Dates: start: 20051001, end: 20110301
  12. VITAMIN D [Concomitant]
     Indication: OSTEOPENIA
  13. WELLBUTRIN [Concomitant]
     Indication: DEPRESSION
     Route: 048
  14. TRIAMTERENE AND HYDROCHLOROTHIAZIDE [Concomitant]
     Dosage: ONCE A DAY

REACTIONS (1)
  - BACK PAIN [None]
